FAERS Safety Report 9200118 (Version 3)
Quarter: 2013Q2

REPORT INFORMATION
  Report Type: Spontaneous
  Country: CN (occurrence: CN)
  Receive Date: 20130329
  Receipt Date: 20130410
  Transmission Date: 20140414
  Serious: Yes (Other)
  Sender: FDA-Public Use
  Company Number: CN-ASTRAZENECA-2013SE17827

PATIENT
  Age: 76 Year
  Sex: Female

DRUGS (10)
  1. BETALOC ZOK [Suspect]
     Indication: HYPERTENSION
     Route: 048
     Dates: start: 2012, end: 201303
  2. BETALOC ZOK [Suspect]
     Indication: HYPERTENSION
     Dosage: 1TABLET OR 1.5 TABLET WHEN BP IN HIGH SIDE
     Route: 048
  3. BETALOC [Suspect]
     Indication: HYPERTENSION
     Route: 048
     Dates: start: 201303
  4. CRESTOR [Suspect]
     Indication: ISCHAEMIC CEREBRAL INFARCTION
     Dosage: 2.5 MG (1/4 TABLET) DAILY
     Route: 048
     Dates: start: 201302
  5. CRESTOR [Suspect]
     Indication: ARTERIOSCLEROSIS
     Dosage: 2.5 MG (1/4 TABLET) DAILY
     Route: 048
     Dates: start: 201302
  6. CRESTOR [Suspect]
     Indication: ISCHAEMIC CEREBRAL INFARCTION
     Route: 048
     Dates: start: 20130305
  7. CRESTOR [Suspect]
     Indication: ARTERIOSCLEROSIS
     Route: 048
     Dates: start: 20130305
  8. TALCOM [Concomitant]
     Indication: MYOCARDIAL INFARCTION
     Route: 048
  9. MECOBALAMIN [Concomitant]
     Indication: NEUROPATHY PERIPHERAL
     Route: 048
  10. TORASEMIDE [Concomitant]

REACTIONS (5)
  - Ischaemic cerebral infarction [Not Recovered/Not Resolved]
  - Arteriosclerosis [Unknown]
  - Hypotension [Recovering/Resolving]
  - Dizziness [Recovering/Resolving]
  - Intentional drug misuse [Not Recovered/Not Resolved]
